FAERS Safety Report 24434361 (Version 3)
Quarter: 2024Q4

REPORT INFORMATION
  Report Type: Spontaneous
  Country: US (occurrence: US)
  Receive Date: 20241014
  Receipt Date: 20241108
  Transmission Date: 20250114
  Serious: No
  Sender: PFIZER
  Company Number: US-PFIZER INC-202400275555

PATIENT
  Age: 64 Year
  Sex: Female
  Weight: 56.25 kg

DRUGS (1)
  1. XELJANZ XR [Suspect]
     Active Substance: TOFACITINIB CITRATE
     Indication: Rheumatoid arthritis
     Dosage: 11MG TABLETS; TAKES 1 A DAY AT NIGHT BEFORE BED
     Route: 048
     Dates: start: 2024

REACTIONS (5)
  - Sciatic nerve injury [Unknown]
  - Pain [Unknown]
  - Neck pain [Unknown]
  - Back pain [Not Recovered/Not Resolved]
  - Product dose omission in error [Unknown]

NARRATIVE: CASE EVENT DATE: 20240901
